FAERS Safety Report 14033661 (Version 5)
Quarter: 2018Q2

REPORT INFORMATION
  Report Type: Report from Study
  Country: JP (occurrence: JP)
  Receive Date: 20171003
  Receipt Date: 20180420
  Transmission Date: 20180711
  Serious: Yes (Life-Threatening, Hospitalization, Other)
  Sender: FDA-Public Use
  Company Number: JP-ASTELLAS-2017JP018522

PATIENT
  Age: 1 Year
  Sex: Male
  Weight: 26 kg

DRUGS (6)
  1. TACROLIMUS. [Suspect]
     Active Substance: TACROLIMUS
     Indication: LIVER TRANSPLANT
     Dosage: 0.2 MG, TWICE DAILY
     Route: 048
     Dates: start: 20081109, end: 20101111
  2. TACROLIMUS. [Suspect]
     Active Substance: TACROLIMUS
     Indication: CONGENITAL ABSENCE OF BILE DUCTS
  3. BIO-THREE [Concomitant]
     Active Substance: HERBALS
     Indication: CONGENITAL ABSENCE OF BILE DUCTS
     Dosage: 0.5 G, TWICE DAILY
     Route: 048
     Dates: start: 20081109
  4. GASTER [Concomitant]
     Active Substance: FAMOTIDINE
     Indication: CONGENITAL ABSENCE OF BILE DUCTS
     Route: 048
     Dates: start: 20081109
  5. URSO [Concomitant]
     Active Substance: URSODIOL
     Indication: CONGENITAL ABSENCE OF BILE DUCTS
     Route: 048
     Dates: start: 20081109
  6. MEDROL [Concomitant]
     Active Substance: METHYLPREDNISOLONE
     Indication: CONGENITAL ABSENCE OF BILE DUCTS
     Route: 048
     Dates: start: 20081109

REACTIONS (8)
  - Respiratory arrest [Recovered/Resolved]
  - Rash [Recovering/Resolving]
  - Diarrhoea [Recovering/Resolving]
  - Anaphylactic shock [Recovered/Resolved]
  - Rash [Recovering/Resolving]
  - Pyrexia [Recovered/Resolved]
  - Seizure [Recovered/Resolved]
  - Eyelid oedema [Recovering/Resolving]

NARRATIVE: CASE EVENT DATE: 20090519
